FAERS Safety Report 7455074-0 (Version None)
Quarter: 2011Q2

REPORT INFORMATION
  Report Type: 
  Country: None (occurrence: None)
  Receive Date: 20110503
  Receipt Date: 20110502
  Transmission Date: 20111010
  Serious: Yes (Other)
  Sender: FDA-Public Use
  Company Number: JP-PFIZER INC-2011093313

PATIENT
  Age: 69 Year
  Sex: Female

DRUGS (1)
  1. ATARAX [Suspect]
     Dosage: UNK
     Route: 042
     Dates: start: 20100301

REACTIONS (1)
  - ANAPHYLACTOID SHOCK [None]
